FAERS Safety Report 6980494-8 (Version None)
Quarter: 2010Q3

REPORT INFORMATION
  Report Type: 
  Country: None (occurrence: None)
  Receive Date: 20100914
  Receipt Date: 20100831
  Transmission Date: 20110219
  Serious: Yes (Other)
  Sender: FDA-Public Use
  Company Number: PHHY2010US54312

PATIENT
  Sex: Male

DRUGS (6)
  1. RECLAST [Suspect]
     Indication: OSTEOPOROSIS
     Dosage: UNK
     Route: 042
     Dates: start: 20100429
  2. CALCIUM [Concomitant]
     Route: 048
  3. VITAMIN D [Concomitant]
  4. ASPIRIN [Concomitant]
     Dosage: EVERY 4 TO 4.5 HOURS,QD
     Route: 048
  5. VITAMINS [Concomitant]
     Dosage: QD
     Route: 048
  6. VITAMIN B COMPLEX CAP [Concomitant]
     Dosage: QD
     Route: 048

REACTIONS (7)
  - ASTHENIA [None]
  - EXCORIATION [None]
  - FALL [None]
  - LIMB DISCOMFORT [None]
  - MONOPLEGIA [None]
  - PYREXIA [None]
  - WHEELCHAIR USER [None]
